FAERS Safety Report 5732786-8 (Version None)
Quarter: 2008Q2

REPORT INFORMATION
  Report Type: 
  Country: None (occurrence: None)
  Receive Date: 20080507
  Receipt Date: 20080507
  Transmission Date: 20081010
  Serious: Yes (Hospitalization)
  Sender: FDA-Public Use
  Company Number: None

PATIENT
  Age: 56 Year
  Sex: Male

DRUGS (2)
  1. PHENYTOIN [Suspect]
  2. OPIATES, ANTICONVULSANTS [Suspect]

REACTIONS (2)
  - DELIRIUM [None]
  - THERAPEUTIC AGENT TOXICITY [None]
